FAERS Safety Report 5894760-0 (Version None)
Quarter: 2008Q3

REPORT INFORMATION
  Report Type: 
  Country: None (occurrence: None)
  Receive Date: 20080924
  Receipt Date: 20080425
  Transmission Date: 20090109
  Serious: No
  Sender: FDA-Public Use
  Company Number: US-ASTRAZENECA-2008UW08489

PATIENT
  Age: 26 Year
  Sex: Female
  Weight: 63.5 kg

DRUGS (1)
  1. SEROQUEL XR [Suspect]
     Indication: DEPRESSION
     Route: 048
     Dates: start: 20080301

REACTIONS (2)
  - ALOPECIA [None]
  - WEIGHT INCREASED [None]
